FAERS Safety Report 14037250 (Version 1)
Quarter: 2017Q4

REPORT INFORMATION
  Report Type: Report from Study
  Country: US (occurrence: US)
  Receive Date: 20171004
  Receipt Date: 20171004
  Transmission Date: 20180321
  Serious: Yes (Other)
  Sender: FDA-Public Use
  Company Number: US-SUN PHARMACEUTICAL INDUSTRIES LTD-2017US-150856

PATIENT
  Sex: Female

DRUGS (1)
  1. TOPIRAMATE. [Suspect]
     Active Substance: TOPIRAMATE
     Indication: INFANTILE SPASMS
     Dosage: 10 MG/KG, DAILY
     Route: 065

REACTIONS (2)
  - Drug ineffective [Unknown]
  - Weight decreased [Unknown]
